FAERS Safety Report 21842088 (Version 2)
Quarter: 2023Q1

REPORT INFORMATION
  Report Type: Spontaneous
  Country: US (occurrence: US)
  Receive Date: 20230110
  Receipt Date: 20230217
  Transmission Date: 20230418
  Serious: Yes (Hospitalization)
  Sender: FDA-Public Use
  Company Number: US-JNJFOC-20230108733

PATIENT
  Age: 4 Decade
  Sex: Female

DRUGS (4)
  1. HALDOL DECANOATE [Suspect]
     Active Substance: HALOPERIDOL DECANOATE
     Indication: Product used for unknown indication
     Dosage: AT 75 DISTRIBUTE
     Route: 065
     Dates: start: 202102, end: 202302
  2. HALDOL DECANOATE [Suspect]
     Active Substance: HALOPERIDOL DECANOATE
     Route: 065
     Dates: start: 2012
  3. SESAME OIL [Concomitant]
     Active Substance: SESAME OIL
  4. ALCOHOL [Concomitant]
     Active Substance: ALCOHOL

REACTIONS (15)
  - Hospitalisation [Unknown]
  - Personality change [Unknown]
  - Dehydration [Unknown]
  - Malnutrition [Unknown]
  - Malabsorption [Unknown]
  - Fluid retention [Unknown]
  - Feeling abnormal [Unknown]
  - Lip dry [Unknown]
  - Discomfort [Unknown]
  - Hair disorder [Unknown]
  - Hypoaesthesia [Unknown]
  - Hair texture abnormal [Unknown]
  - Dysphonia [Unknown]
  - Therapeutic product effect decreased [Unknown]
  - Pruritus [Unknown]

NARRATIVE: CASE EVENT DATE: 20120101
